FAERS Safety Report 14445169 (Version 1)
Quarter: 2018Q1

REPORT INFORMATION
  Report Type: Spontaneous
  Country: US (occurrence: US)
  Receive Date: 20180126
  Receipt Date: 20180126
  Transmission Date: 20180509
  Serious: No
  Sender: FDA-Public Use
  Company Number: US-PFIZER INC-2018032970

PATIENT
  Age: 73 Year
  Sex: Female

DRUGS (1)
  1. METHOTREXATE SODIUM. [Suspect]
     Active Substance: METHOTREXATE SODIUM
     Dosage: 10 MG, WEEKLY
     Route: 058

REACTIONS (7)
  - Alopecia [Unknown]
  - Oral discomfort [Unknown]
  - Drug ineffective [Unknown]
  - Gingival discomfort [Unknown]
  - Tongue discomfort [Unknown]
  - Irritability [Unknown]
  - Anxiety [Unknown]
